FAERS Safety Report 8426965-9 (Version None)
Quarter: 2012Q2

REPORT INFORMATION
  Report Type: 
  Country: None (occurrence: None)
  Receive Date: 20120611
  Receipt Date: 20120611
  Transmission Date: 20120825
  Serious: Yes (Hospitalization)
  Sender: FDA-Public Use
  Company Number: CN-JNJFOC-20110803570

PATIENT
  Sex: Female
  Weight: 50 kg

DRUGS (1)
  1. RISPERDAL [Suspect]
     Indication: SCHIZOPHRENIA
     Dosage: 7 YEARS AGO
     Route: 048
     Dates: start: 20040815, end: 20110815

REACTIONS (1)
  - BREAST CANCER [None]
